FAERS Safety Report 10094273 (Version 1)
Quarter: 2014Q2

REPORT INFORMATION
  Report Type: Spontaneous
  Country: US (occurrence: None)
  Receive Date: 20140418
  Receipt Date: 20140418
  Transmission Date: 20141212
  Serious: Yes (Death)
  Sender: FDA-Public Use
  Company Number: SYM-2014-19635

PATIENT
  Age: 55 Year
  Sex: Male

DRUGS (1)
  1. TARGRETIN GEL [Suspect]
     Indication: MYCOSIS FUNGOIDES
     Dosage: 2 IN 1 TOPICAL
     Route: 061
     Dates: start: 20140305, end: 201403

REACTIONS (2)
  - Death [None]
  - Death [None]
